FAERS Safety Report 7983419-1 (Version None)
Quarter: 2011Q4

REPORT INFORMATION
  Report Type: 
  Country: None (occurrence: None)
  Receive Date: 20111215
  Receipt Date: 20111209
  Transmission Date: 20120403
  Serious: Yes (Other)
  Sender: FDA-Public Use
  Company Number: CHPA2011CA017796

PATIENT
  Age: 62 Year
  Sex: Female

DRUGS (3)
  1. AMOXICILLIN [Concomitant]
     Indication: TOOTH INFECTION
     Dosage: 3 DF, QD
     Route: 048
     Dates: start: 20111209
  2. HABITROL [Suspect]
     Indication: SMOKING CESSATION THERAPY
     Dosage: 14 MG, QD
     Route: 062
  3. HABITROL [Suspect]
     Dosage: 21 MG, QD
     Route: 062

REACTIONS (7)
  - OVERDOSE [None]
  - ANEURYSM [None]
  - BACK PAIN [None]
  - INAPPROPRIATE SCHEDULE OF DRUG ADMINISTRATION [None]
  - FALL [None]
  - UNDERDOSE [None]
  - TREATMENT NONCOMPLIANCE [None]
